FAERS Safety Report 7632021-X (Version None)
Quarter: 2011Q3

REPORT INFORMATION
  Report Type: 
  Country: None (occurrence: None)
  Receive Date: 20110725
  Receipt Date: 20101020
  Transmission Date: 20111222
  Serious: No
  Sender: FDA-Public Use
  Company Number: US-BRISTOL-MYERS SQUIBB COMPANY-15013642

PATIENT
  Age: 67 Year
  Sex: Female

DRUGS (2)
  1. CHEMOTHERAPY [Interacting]
  2. COUMADIN [Suspect]

REACTIONS (1)
  - DRUG INTERACTION [None]
